FAERS Safety Report 12299326 (Version 9)
Quarter: 2016Q4

REPORT INFORMATION
  Report Type: Spontaneous
  Country: AU (occurrence: AU)
  Receive Date: 20160425
  Receipt Date: 20161208
  Transmission Date: 20170207
  Serious: Yes (Other)
  Sender: FDA-Public Use
  Company Number: AU-SA-2016SA040173

PATIENT
  Age: 52 Year
  Sex: Male
  Weight: 60 kg

DRUGS (36)
  1. FABRAZYME [Suspect]
     Active Substance: AGALSIDASE BETA
     Indication: FABRY^S DISEASE
     Dosage: EXPIRY DATE: E5002Y1 (AUG) ; E5020Y03 (NOV)
     Route: 041
     Dates: start: 201312, end: 2016
  2. FABRAZYME [Suspect]
     Active Substance: AGALSIDASE BETA
     Indication: FABRY^S DISEASE
     Dosage: EXPIRY DATE: E5002Y1 (AUG) ; E5020Y03 (NOV)
     Route: 041
     Dates: start: 201312, end: 2016
  3. FABRAZYME [Suspect]
     Active Substance: AGALSIDASE BETA
     Indication: FABRY^S DISEASE
     Dosage: EXPIRY DATE: E5002Y1 (AUG) ; E5020Y03 (NOV)
     Route: 041
     Dates: start: 201312, end: 2016
  4. FABRAZYME [Suspect]
     Active Substance: AGALSIDASE BETA
     Indication: FABRY^S DISEASE
     Dosage: EXPIRY DATE: E5002Y1 (AUG) ; E5020Y03 (NOV)
     Route: 041
     Dates: start: 201312, end: 2016
  5. FABRAZYME [Suspect]
     Active Substance: AGALSIDASE BETA
     Indication: FABRY^S DISEASE
     Dosage: EXPIRY DATE: E5002Y1 (AUG) ; E5020Y03 (NOV)
     Route: 041
     Dates: start: 2016
  6. TACROLIMUS. [Suspect]
     Active Substance: TACROLIMUS
     Route: 065
  7. ASPIRIN. [Concomitant]
     Active Substance: ASPIRIN
  8. DILTIAZEM. [Concomitant]
     Active Substance: DILTIAZEM
  9. FAMOTIDINE. [Concomitant]
     Active Substance: FAMOTIDINE
  10. FISH OIL [Concomitant]
     Active Substance: FISH OIL
  11. PRAVASTATIN. [Concomitant]
     Active Substance: PRAVASTATIN
  12. PROMETHAZINE [Concomitant]
     Active Substance: PROMETHAZINE\PROMETHAZINE HYDROCHLORIDE
  13. MYCOPHENOLATE MOFETIL. [Concomitant]
     Active Substance: MYCOPHENOLATE MOFETIL
  14. VALCYTE [Concomitant]
     Active Substance: VALGANCICLOVIR HYDROCHLORIDE
  15. VALCYTE [Concomitant]
     Active Substance: VALGANCICLOVIR HYDROCHLORIDE
     Dates: start: 201507
  16. LORATADINE. [Concomitant]
     Active Substance: LORATADINE
     Indication: PREMEDICATION
     Route: 048
  17. FABRAZYME [Suspect]
     Active Substance: AGALSIDASE BETA
     Indication: FABRY^S DISEASE
     Dosage: EXPIRY DATE: E5002Y1 (AUG) ; E5020Y03 (NOV)
     Route: 041
     Dates: start: 2016
  18. FABRAZYME [Suspect]
     Active Substance: AGALSIDASE BETA
     Indication: FABRY^S DISEASE
     Dosage: EXPIRY DATE: E5002Y1 (AUG) ; E5020Y03 (NOV)
     Route: 041
     Dates: start: 2016
  19. FABRAZYME [Suspect]
     Active Substance: AGALSIDASE BETA
     Indication: FABRY^S DISEASE
     Dosage: EXPIRY DATE: E5002Y1 (AUG) ; E5020Y03 (NOV)
     Route: 041
     Dates: start: 2016
  20. LEVETIRACETAM. [Concomitant]
     Active Substance: LEVETIRACETAM
  21. PANTOPRAZOLE [Concomitant]
     Active Substance: PANTOPRAZOLE SODIUM
  22. FABRAZYME [Suspect]
     Active Substance: AGALSIDASE BETA
     Indication: FABRY^S DISEASE
     Dosage: EXPIRY DATE: E5002Y1 (AUG) ; E5020Y03 (NOV)
     Route: 041
     Dates: start: 2016
  23. PANADEINE FORTE [Concomitant]
     Active Substance: ACETAMINOPHEN\CODEINE PHOSPHATE
  24. FABRAZYME [Suspect]
     Active Substance: AGALSIDASE BETA
     Indication: FABRY^S DISEASE
     Dosage: EXPIRY DATE: E5002Y1 (AUG) ; E5020Y03 (NOV)
     Route: 041
     Dates: start: 2016
  25. CALCITRIOL. [Concomitant]
     Active Substance: CALCITRIOL
  26. LEVETIRACETAM. [Concomitant]
     Active Substance: LEVETIRACETAM
  27. PREDNISOLONE. [Concomitant]
     Active Substance: PREDNISOLONE
  28. ESCITALOPRAM [Concomitant]
     Active Substance: ESCITALOPRAM OXALATE
  29. ESCITALOPRAM [Concomitant]
     Active Substance: ESCITALOPRAM OXALATE
  30. FABRAZYME [Suspect]
     Active Substance: AGALSIDASE BETA
     Indication: FABRY^S DISEASE
     Dosage: EXPIRY DATE: E5002Y1 (AUG) ; E5020Y03 (NOV)
     Route: 041
     Dates: start: 201312, end: 2016
  31. FABRAZYME [Suspect]
     Active Substance: AGALSIDASE BETA
     Indication: FABRY^S DISEASE
     Dosage: EXPIRY DATE: E5002Y1 (AUG) ; E5020Y03 (NOV)
     Route: 041
     Dates: start: 2016
  32. PREDNISOLONE. [Concomitant]
     Active Substance: PREDNISOLONE
  33. MYCOPHENOLATE MOFETIL. [Concomitant]
     Active Substance: MYCOPHENOLATE MOFETIL
  34. PARACETAMOL [Concomitant]
     Active Substance: ACETAMINOPHEN
     Indication: PREMEDICATION
     Route: 048
  35. FABRAZYME [Suspect]
     Active Substance: AGALSIDASE BETA
     Indication: FABRY^S DISEASE
     Dosage: EXPIRY DATE: E5002Y1 (AUG) ; E5020Y03 (NOV)
     Route: 041
     Dates: start: 201312, end: 2016
  36. FABRAZYME [Suspect]
     Active Substance: AGALSIDASE BETA
     Indication: FABRY^S DISEASE
     Dosage: EXPIRY DATE: E5002Y1 (AUG) ; E5020Y03 (NOV)
     Route: 041
     Dates: start: 201312, end: 2016

REACTIONS (40)
  - Basal cell carcinoma [Not Recovered/Not Resolved]
  - Diastolic dysfunction [Unknown]
  - Cardiac disorder [Unknown]
  - Fibrosis [Unknown]
  - Visual impairment [Unknown]
  - Cough [Unknown]
  - Colitis [Unknown]
  - Pleural fibrosis [Unknown]
  - Hoffmann^s sign [Unknown]
  - Balint^s syndrome [Unknown]
  - Haemoglobin decreased [Unknown]
  - Sensory disturbance [Unknown]
  - Azotaemia [Recovering/Resolving]
  - Body temperature decreased [Unknown]
  - Diarrhoea [Recovered/Resolved]
  - Liver function test abnormal [Unknown]
  - Confusional state [Unknown]
  - Left ventricular hypertrophy [Unknown]
  - Blindness cortical [Unknown]
  - Device related infection [Recovered/Resolved]
  - Ataxia [Unknown]
  - Cardiac valve disease [Unknown]
  - Neuralgia [Unknown]
  - Fistula [Unknown]
  - Emphysema [Unknown]
  - Tandem gait test abnormal [Unknown]
  - Pain [Recovering/Resolving]
  - Fungal skin infection [Unknown]
  - Resting tremor [Unknown]
  - Abdominal distension [Unknown]
  - Cytomegalovirus infection [Recovering/Resolving]
  - Apraxia [Unknown]
  - Aortic stenosis [Not Recovered/Not Resolved]
  - Bradycardia [Recovered/Resolved]
  - Localised infection [Recovered/Resolved]
  - Contusion [Unknown]
  - Visual agnosia [Unknown]
  - Hepatitis [Unknown]
  - Condition aggravated [Unknown]
  - Skin lesion [Unknown]

NARRATIVE: CASE EVENT DATE: 201312
